FAERS Safety Report 7287898-7 (Version None)
Quarter: 2011Q1

REPORT INFORMATION
  Report Type: 
  Country: None (occurrence: None)
  Receive Date: 20110211
  Receipt Date: 20101018
  Transmission Date: 20110831
  Serious: No
  Sender: FDA-Public Use
  Company Number: A0887393A

PATIENT
  Sex: Female

DRUGS (5)
  1. TREXIMET [Suspect]
     Indication: MIGRAINE
     Dosage: 1TAB AS REQUIRED
     Route: 048
     Dates: start: 20080101
  2. VITAMIN D [Concomitant]
  3. TOPIRAMATE [Concomitant]
  4. CALCIUM [Concomitant]
  5. ALEVE [Concomitant]

REACTIONS (2)
  - HEADACHE [None]
  - DRUG INEFFECTIVE [None]
